FAERS Safety Report 6448815-2 (Version None)
Quarter: 2009Q4

REPORT INFORMATION
  Report Type: 
  Country: None (occurrence: None)
  Receive Date: 20091120
  Receipt Date: 20091118
  Transmission Date: 20100525
  Serious: Yes (Life-Threatening)
  Sender: FDA-Public Use
  Company Number: PHHY2009JP09356

PATIENT
  Sex: Male
  Weight: 63 kg

DRUGS (8)
  1. ZOMETA [Suspect]
     Indication: METASTASES TO BONE
     Dosage: 4 MG, ONCE/SINGLE
     Route: 042
     Dates: start: 20080327, end: 20080327
  2. CASODEX [Suspect]
     Indication: PROSTATE CANCER
     Dosage: 80 MG, QD
     Route: 048
     Dates: start: 20070618, end: 20081019
  3. BUP-4 [Suspect]
     Indication: POLLAKIURIA
     Dosage: 20 MG, QD
     Route: 048
     Dates: start: 20080218, end: 20080224
  4. LEUPLIN [Suspect]
     Indication: PROSTATE CANCER
     Dosage: 11.25 MG, QD
     Route: 058
     Dates: start: 20061004, end: 20080924
  5. PREDONINE [Concomitant]
     Dosage: 50 MG, DAILY
     Route: 042
     Dates: start: 20080417
  6. PREDONINE [Concomitant]
     Dosage: 40 MG, UNK
     Route: 042
     Dates: start: 20080425
  7. PREDONINE [Concomitant]
     Dosage: 30 MG, UNK
     Route: 042
     Dates: start: 20080502
  8. PREDONINE [Concomitant]
     Dosage: 30 MG, UNK
     Route: 048
     Dates: start: 20080507

REACTIONS (2)
  - INTERSTITIAL LUNG DISEASE [None]
  - PYREXIA [None]
